FAERS Safety Report 6998721-X (Version None)
Quarter: 2010Q3

REPORT INFORMATION
  Report Type: 
  Country: None (occurrence: None)
  Receive Date: 20100920
  Receipt Date: 20100318
  Transmission Date: 20110219
  Serious: No
  Sender: FDA-Public Use
  Company Number: US-ASTRAZENECA-2010SE12277

PATIENT
  Sex: Female

DRUGS (3)
  1. SEROQUEL [Suspect]
     Indication: SLEEP DISORDER
     Route: 048
     Dates: start: 19990101, end: 19990101
  2. XANAX [Concomitant]
  3. REMERON [Concomitant]

REACTIONS (3)
  - DRY MOUTH [None]
  - HANGOVER [None]
  - NASAL CONGESTION [None]
